FAERS Safety Report 9865147 (Version 3)
Quarter: 2014Q1

REPORT INFORMATION
  Report Type: Spontaneous
  Country: US (occurrence: US)
  Receive Date: 20140203
  Receipt Date: 20140213
  Transmission Date: 20141002
  Serious: Yes (Hospitalization)
  Sender: FDA-Public Use
  Company Number: US-LUNDBECK-DKLU1096530

PATIENT
  Age: 4 Year
  Sex: Male
  Weight: 13 kg

DRUGS (9)
  1. SABRIL (FOR ORAL SOLUTION) [Suspect]
     Indication: INFANTILE SPASMS
     Route: 048
     Dates: start: 20100910
  2. SABRIL (FOR ORAL SOLUTION) [Suspect]
  3. ONFI [Concomitant]
     Indication: PRODUCT USED FOR UNKNOWN INDICATION
     Route: 048
  4. PHENOBARBITAL [Concomitant]
     Indication: CONVULSION
     Route: 048
  5. PHENOBARBITAL [Concomitant]
  6. PHENOBARBITAL [Concomitant]
  7. TOPAMAX [Concomitant]
     Indication: CONVULSION
  8. TOPAMAX [Concomitant]
  9. TOPAMAX [Concomitant]

REACTIONS (8)
  - Sepsis [Unknown]
  - Clostridium difficile infection [Recovered/Resolved]
  - Upper respiratory tract infection [Recovered/Resolved]
  - Convulsion [Recovered/Resolved]
  - Parainfluenzae virus infection [Unknown]
  - Pneumonia [Unknown]
  - Urinary tract infection [Unknown]
  - Respiratory distress [Recovered/Resolved]
